FAERS Safety Report 5200703-5 (Version None)
Quarter: 2006Q4

REPORT INFORMATION
  Report Type: 
  Country: None (occurrence: None)
  Receive Date: 20061016
  Receipt Date: 20060627
  Transmission Date: 20070319
  Serious: No
  Sender: FDA-Public Use
  Company Number: 2006SP002565

PATIENT
  Age: 56 Year
  Sex: Female
  Weight: 77.1115 kg

DRUGS (5)
  1. LUNESTA [Suspect]
     Indication: INSOMNIA
     Dosage: 3 MG; QOD; ORAL; SEE IMAGE
     Route: 048
     Dates: start: 20050101, end: 20060201
  2. LUNESTA [Suspect]
     Indication: INSOMNIA
     Dosage: 3 MG; QOD; ORAL; SEE IMAGE
     Route: 048
     Dates: start: 20060201
  3. CYMBALTA [Concomitant]
  4. PRILOSEC [Concomitant]
  5. CALM TABS [Concomitant]

REACTIONS (1)
  - DRUG EFFECT DECREASED [None]
